FAERS Safety Report 24154475 (Version 1)
Quarter: 2024Q3

REPORT INFORMATION
  Report Type: Report from Study
  Country: PH (occurrence: PH)
  Receive Date: 20240731
  Receipt Date: 20240731
  Transmission Date: 20241016
  Serious: Yes (Other)
  Sender: CSL BEHRING
  Company Number: PH-BEH-2024176323

PATIENT

DRUGS (1)
  1. HUMAN IMMUNOGLOBULIN G [Suspect]
     Active Substance: HUMAN IMMUNOGLOBULIN G
     Indication: Myasthenia gravis crisis
     Route: 042

REACTIONS (4)
  - Arrhythmia [Unknown]
  - Renal impairment [Unknown]
  - Hypomagnesaemia [Unknown]
  - Hypotension [Unknown]
